FAERS Safety Report 8588023-2 (Version None)
Quarter: 2012Q3

REPORT INFORMATION
  Report Type: 
  Country: None (occurrence: None)
  Receive Date: 20120731
  Receipt Date: 20120717
  Transmission Date: 20120928
  Serious: Yes (Other)
  Sender: FDA-Public Use
  Company Number: USA/USA/12/0025105

PATIENT
  Age: 68 Year
  Sex: Female
  Weight: 84 kg

DRUGS (20)
  1. CLONAZEPAM [Concomitant]
  2. PAXIL [Suspect]
     Indication: PRODUCT USED FOR UNKNOWN INDICATION
  3. HYDROMORPHONE HYDROCHLORIDE [Suspect]
     Indication: PRODUCT USED FOR UNKNOWN INDICATION
     Dosage: 1 MG, 0.4 MG
  4. OXYCODONE HCL [Concomitant]
  5. ONDANSETRON 4 MG (ONDANSETRON HYDROCHLORIDE) [Suspect]
     Indication: PRODUCT USED FOR UNKNOWN INDICATION
     Dosage: 4 MG
  6. CYMBALTA [Suspect]
     Indication: PRODUCT USED FOR UNKNOWN INDICATION
  7. GABAPENTIN [Concomitant]
  8. FOSAMAX [Concomitant]
  9. SENNA (SENNA ALEXABDRUBA) [Concomitant]
  10. CALCIUM TABS (CALCIUM) [Concomitant]
  11. FENTANYL [Suspect]
     Indication: ANALGESIC THERAPY
     Dosage: 50 MCG; 100 MCG
  12. LEVOTHYROXINE SODIUM [Concomitant]
  13. TRIAMTERENE AND HYDROCHLOROTHIAZIDE (DYAZIDE) [Concomitant]
  14. WELLBUTRIN [Suspect]
     Indication: PRODUCT USED FOR UNKNOWN INDICATION
  15. FLUDROCORTISONE ACETATE [Concomitant]
  16. MULTI-VITAMIN (VIGRAN) [Concomitant]
  17. OMEPRAZOLE [Concomitant]
  18. LISINOPRIL [Concomitant]
  19. LIPITOR [Concomitant]
  20. GABITRIL [Concomitant]

REACTIONS (6)
  - OXYGEN SATURATION DECREASED [None]
  - CONFUSIONAL STATE [None]
  - SEROTONIN SYNDROME [None]
  - APNOEIC ATTACK [None]
  - HYPERREFLEXIA [None]
  - UNRESPONSIVE TO STIMULI [None]
